FAERS Safety Report 8384379-4 (Version None)
Quarter: 2012Q2

REPORT INFORMATION
  Report Type: 
  Country: None (occurrence: None)
  Receive Date: 20120524
  Receipt Date: 20120517
  Transmission Date: 20120825
  Serious: Yes (Other)
  Sender: FDA-Public Use
  Company Number: US-GLAXOSMITHKLINE-A0881625A

PATIENT
  Age: 56 Year
  Sex: Female
  Weight: 127.3 kg

DRUGS (7)
  1. INSULIN [Concomitant]
  2. TOPROL-XL [Concomitant]
  3. LIPITOR [Concomitant]
  4. PREMARIN [Concomitant]
  5. BENICAR [Concomitant]
  6. ALTACE [Concomitant]
     Dates: end: 20030501
  7. AVANDIA [Suspect]
     Indication: DIABETES MELLITUS
     Dosage: 8MG PER DAY
     Route: 048

REACTIONS (8)
  - CARDIAC FAILURE CONGESTIVE [None]
  - RENAL FAILURE [None]
  - LIMB DISCOMFORT [None]
  - CORONARY ARTERY DISEASE [None]
  - ANGINA PECTORIS [None]
  - PAIN [None]
  - INCREASED TENDENCY TO BRUISE [None]
  - DYSPNOEA [None]
